FAERS Safety Report 8891169 (Version 2)
Quarter: 2012Q4

REPORT INFORMATION
  Report Type: 
  Country: US (occurrence: US)
  Receive Date: 20121107
  Receipt Date: 20121121
  Transmission Date: 20130627
  Serious: Yes (Hospitalization)
  Sender: FDA-Public Use
  Company Number: US-BAXTER-2012BAX022271

PATIENT
  Age: 69 Year
  Sex: Female

DRUGS (2)
  1. DIANEAL LOW CALCIUM [Suspect]
     Indication: PERITONEAL DIALYSIS
     Route: 033
  2. DIANEAL LOW CALCIUM [Suspect]
     Indication: PERITONEAL DIALYSIS
     Route: 033

REACTIONS (6)
  - Infection [Recovering/Resolving]
  - Urinary tract infection [Recovered/Resolved]
  - Blood glucose increased [Recovered/Resolved]
  - Diabetic complication [Recovered/Resolved]
  - Hypertension [Recovering/Resolving]
  - Malaise [Unknown]
